FAERS Safety Report 7888418-6 (Version None)
Quarter: 2011Q4

REPORT INFORMATION
  Report Type: 
  Country: None (occurrence: None)
  Receive Date: 20111103
  Receipt Date: 20111027
  Transmission Date: 20120403
  Serious: Yes (Other)
  Sender: FDA-Public Use
  Company Number: FR-PFIZER INC-2011174097

PATIENT
  Age: 68 Year
  Sex: Male
  Weight: 73 kg

DRUGS (11)
  1. PROGRAF [Suspect]
     Dosage: 2 MG, 1X/DAY
     Dates: start: 20081223, end: 20090621
  2. PROGRAF [Suspect]
     Dosage: 1 MG, 1X/DAY
     Dates: start: 20090622, end: 20100617
  3. SIROLIMUS [Suspect]
     Indication: PROPHYLAXIS AGAINST TRANSPLANT REJECTION
     Dosage: 2 MG, 1X/DAY
     Route: 048
     Dates: start: 20080128, end: 20081222
  4. SIROLIMUS [Suspect]
     Dosage: 1 MG, 1X/DAY
     Route: 048
     Dates: start: 20081223
  5. PLAVIX [Concomitant]
  6. LAMIVUDINE [Concomitant]
     Dosage: UNKNOWN
  7. PROGRAF [Suspect]
     Dosage: 4 MG, 1X/DAY FROM RANDOMIZATION
     Dates: start: 20080129, end: 20081222
  8. OMEPRAZOLE [Concomitant]
     Dosage: UNKNOWN
  9. CORDARONE [Concomitant]
  10. LEVOTHYROXINE SODIUM [Concomitant]
     Dosage: UNKNOWN
  11. PROGRAF [Suspect]
     Indication: IMMUNOSUPPRESSION
     Dosage: 10 MG, 1X/DAY, UNTIL RANDOMIZATION
     Dates: start: 20071227, end: 20080128

REACTIONS (1)
  - OESOPHAGEAL CARCINOMA [None]
